FAERS Safety Report 26194112 (Version 1)
Quarter: 2025Q4

REPORT INFORMATION
  Report Type: Other
  Country: EU (occurrence: EU)
  Receive Date: 20251224
  Receipt Date: 20251224
  Transmission Date: 20260117
  Serious: Yes (Hospitalization)
  Sender: ZYDUS PHARM
  Company Number: None

PATIENT

DRUGS (6)
  1. SPIRONOLACTONE [Suspect]
     Active Substance: SPIRONOLACTONE
     Indication: Diuretic therapy
     Dosage: 75 MILLIGRAM, QD
     Route: 048
     Dates: start: 202204, end: 20251124
  2. FUROSEMIDE [Suspect]
     Active Substance: FUROSEMIDE
     Indication: Diuretic therapy
     Dosage: 40 MILLIGRAM, QD
     Route: 048
     Dates: start: 202204, end: 20251117
  3. TECENTRIQ [Suspect]
     Active Substance: ATEZOLIZUMAB
     Indication: Hepatocellular carcinoma
     Dosage: 1 DOSAGE FORM, 1 CYCLICAL
     Route: 042
     Dates: start: 20220620, end: 202301
  4. TECENTRIQ [Suspect]
     Active Substance: ATEZOLIZUMAB
     Dosage: 1 DOSAGE FORM,1 CYCLICAL
     Route: 042
     Dates: start: 202306, end: 20251104
  5. BEVACIZUMAB [Suspect]
     Active Substance: BEVACIZUMAB
     Indication: Hepatocellular carcinoma
     Dosage: 1080 MILLIGRAM, 1 CYCLICAL
     Route: 042
     Dates: start: 20220620, end: 202301
  6. BEVACIZUMAB [Suspect]
     Active Substance: BEVACIZUMAB
     Dosage: 1080 MILLIGRAM,1 CYCLICAL
     Route: 042
     Dates: start: 202306, end: 20251104

REACTIONS (1)
  - Oedematous pancreatitis [Recovering/Resolving]

NARRATIVE: CASE EVENT DATE: 20251124
